FAERS Safety Report 12245599 (Version 1)
Quarter: 2016Q2

REPORT INFORMATION
  Report Type: Spontaneous
  Country: US (occurrence: US)
  Receive Date: 20160407
  Receipt Date: 20160407
  Transmission Date: 20160815
  Serious: No
  Sender: FDA-Public Use
  Company Number: US-ACTAVIS-2015-23677

PATIENT
  Sex: Male

DRUGS (1)
  1. HYDROCORTISONE (AMALLC) [Suspect]
     Active Substance: HYDROCORTISONE
     Indication: PRODUCT USED FOR UNKNOWN INDICATION
     Dosage: 30 GRAM TUBE, UNKNOWN
     Route: 065

REACTIONS (1)
  - Gluten sensitivity [Not Recovered/Not Resolved]

NARRATIVE: CASE EVENT DATE: 2015
